FAERS Safety Report 11456016 (Version 2)
Quarter: 2015Q3

REPORT INFORMATION
  Report Type: Report from Study
  Country: US (occurrence: US)
  Receive Date: 20150903
  Receipt Date: 20150922
  Transmission Date: 20151125
  Serious: No
  Sender: FDA-Public Use
  Company Number: US-AMGEN-USASL2015088889

PATIENT
  Age: 55 Year
  Sex: Female
  Weight: 67.57 kg

DRUGS (2)
  1. ENBREL [Suspect]
     Active Substance: ETANERCEPT
     Indication: PSORIASIS
  2. ENBREL [Suspect]
     Active Substance: ETANERCEPT
     Indication: PSORIATIC ARTHROPATHY
     Dosage: 50 MG, QWK
     Route: 058
     Dates: start: 201401

REACTIONS (3)
  - Hepatic enzyme increased [Recovered/Resolved]
  - Hepatic steatosis [Unknown]
  - Gastritis [Unknown]

NARRATIVE: CASE EVENT DATE: 20150723
